FAERS Safety Report 10742631 (Version 1)
Quarter: 2015Q1

REPORT INFORMATION
  Report Type: Other
  Country: NO (occurrence: NO)
  Receive Date: 20150127
  Receipt Date: 20150127
  Transmission Date: 20150721
  Serious: Yes (Death)
  Sender: FDA-Public Use
  Company Number: NO-AMARIN PHARMA, INC.-2015AMR000018

PATIENT

DRUGS (1)
  1. ETHYL-EICOSAPENTAENOATE [Suspect]
     Active Substance: ICOSAPENT ETHYL
     Indication: SCHIZOPHRENIA

REACTIONS (2)
  - Completed suicide [Fatal]
  - Off label use [Unknown]
